FAERS Safety Report 5218281-3 (Version None)
Quarter: 2007Q1

REPORT INFORMATION
  Report Type: 
  Country: None (occurrence: None)
  Receive Date: 20070124
  Receipt Date: 20070112
  Transmission Date: 20070707
  Serious: Yes (Death, Hospitalization)
  Sender: FDA-Public Use
  Company Number: DE-PFIZER INC-2006142888

PATIENT
  Sex: Male

DRUGS (6)
  1. ZELDOX (CAPSULES) [Suspect]
     Indication: RESTLESSNESS
     Route: 048
  2. ZELDOX (CAPSULES) [Suspect]
     Indication: AGGRESSION
  3. SEROQUEL [Concomitant]
     Route: 048
  4. EXELON [Concomitant]
     Route: 048
  5. MEMANTINE HCL [Concomitant]
     Route: 048
  6. CITALOPRAM HYDROBROMIDE [Concomitant]
     Route: 048

REACTIONS (3)
  - CIRCULATORY COLLAPSE [None]
  - DEATH [None]
  - DEMENTIA [None]
